FAERS Safety Report 14558868 (Version 1)
Quarter: 2018Q1

REPORT INFORMATION
  Report Type: Spontaneous
  Country: ES (occurrence: ES)
  Receive Date: 20180221
  Receipt Date: 20180221
  Transmission Date: 20180509
  Serious: Yes (Other)
  Sender: FDA-Public Use
  Company Number: ES-LPDUSPRD-20180207

PATIENT
  Age: 79 Year

DRUGS (1)
  1. VENOFER [Suspect]
     Active Substance: IRON SUCROSE
     Dosage: UNKNOWN
     Route: 042

REACTIONS (6)
  - Pericardial effusion [Unknown]
  - Hypotension [Unknown]
  - Adverse event [Unknown]
  - Ventricular hypertrophy [Unknown]
  - Atrial fibrillation [Unknown]
  - Cold sweat [Unknown]

NARRATIVE: CASE EVENT DATE: 201712
